FAERS Safety Report 12931367 (Version 4)
Quarter: 2017Q1

REPORT INFORMATION
  Report Type: Spontaneous
  Country: FR (occurrence: FR)
  Receive Date: 20161110
  Receipt Date: 20170201
  Transmission Date: 20170428
  Serious: Yes (Congenital Anomaly, Other)
  Sender: FDA-Public Use
  Company Number: FR-009507513-1611FRA004912

PATIENT
  Sex: Male

DRUGS (8)
  1. ESOMEPRAZOLE MAGNESIUM. [Suspect]
     Active Substance: ESOMEPRAZOLE MAGNESIUM
     Indication: GASTROOESOPHAGEAL REFLUX DISEASE
     Dosage: 1 MG/KG PER DAY, ADDED ON DAY 49
  2. GAVISCON (CALCIUM CARBONATE (+) SODIUM ALGINATE (+) SODIUM BICARBONATE [Suspect]
     Active Substance: CALCIUM CARBONATE\SODIUM ALGINATE\SODIUM BICARBONATE
     Indication: ANTACID THERAPY
     Dosage: ADDED ON DAY 49
  3. SODIUM ALGINATE [Suspect]
     Active Substance: SODIUM ALGINATE
     Indication: ANTACID THERAPY
     Dosage: AT USUAL DOSES
  4. NEOCATE [Concomitant]
     Active Substance: DIETARY SUPPLEMENT
     Dosage: UNK, FROM DAY 29
  5. SODIUM ALGINATE [Suspect]
     Active Substance: SODIUM ALGINATE
     Indication: GASTROOESOPHAGEAL REFLUX DISEASE
  6. ALENDRONATE SODIUM. [Suspect]
     Active Substance: ALENDRONATE SODIUM
     Dosage: UNK
     Route: 064
  7. ESOMEPRAZOLE MAGNESIUM. [Suspect]
     Active Substance: ESOMEPRAZOLE MAGNESIUM
     Indication: ANTACID THERAPY
     Dosage: AT USUAL DOSES
  8. GAVISCON (CALCIUM CARBONATE (+) SODIUM ALGINATE (+) SODIUM BICARBONATE [Suspect]
     Active Substance: CALCIUM CARBONATE\SODIUM ALGINATE\SODIUM BICARBONATE
     Indication: GASTROOESOPHAGEAL REFLUX DISEASE

REACTIONS (8)
  - Hypercalciuria [Recovered/Resolved]
  - Foetal exposure during pregnancy [Recovered/Resolved]
  - Craniotabes [Recovered/Resolved]
  - Foetal exposure during pregnancy [Unknown]
  - Blood alkaline phosphatase increased [Recovered/Resolved]
  - Hypophosphataemia [Recovered/Resolved]
  - Hypophosphataemic rickets [Recovered/Resolved]
  - Blood parathyroid hormone decreased [Recovered/Resolved]
